FAERS Safety Report 10383988 (Version 1)
Quarter: 2014Q3

REPORT INFORMATION
  Report Type: Spontaneous
  Country: US (occurrence: None)
  Receive Date: 20140813
  Receipt Date: 20140813
  Transmission Date: 20150326
  Serious: Yes (Other)
  Sender: FDA-Public Use
  Company Number: None

PATIENT
  Age: 51 Year
  Sex: Male
  Weight: 134.27 kg

DRUGS (2)
  1. FENTANYL TRANSDERMAL SYSTEM [Suspect]
     Active Substance: FENTANYL
     Indication: DRUG TOLERANCE
     Dosage: 2 PATCHES EVERY TWO DAYS
     Route: 062
     Dates: start: 20140805, end: 20140811
  2. FENTANYL TRANSDERMAL SYSTEM [Suspect]
     Active Substance: FENTANYL
     Indication: PAIN
     Dosage: 2 PATCHES EVERY TWO DAYS
     Route: 062
     Dates: start: 20140805, end: 20140811

REACTIONS (2)
  - Oedema peripheral [None]
  - Pain in extremity [None]

NARRATIVE: CASE EVENT DATE: 20140805
